FAERS Safety Report 24298280 (Version 1)
Quarter: 2024Q3

REPORT INFORMATION
  Report Type: Spontaneous
  Country: GB (occurrence: GB)
  Receive Date: 20240909
  Receipt Date: 20240909
  Transmission Date: 20241017
  Serious: Yes (Other)
  Sender: TEVA
  Company Number: None

PATIENT
  Age: 87 Year

DRUGS (16)
  1. DEXAMETHASONE [Suspect]
     Active Substance: DEXAMETHASONE
     Dosage: 8MG STAT
     Route: 065
  2. AVEENO [Concomitant]
     Active Substance: DIMETHICONE\HOMOSALATE\OCTINOXATE\OCTISALATE\TITANIUM DIOXIDE
     Dosage: APPLY TWICE A DAY AFTER EACH STEROID APPLICATION; CAN ALSO BE USED AT OTHER TIMES DURING THE DAY ...
  3. QUININE [Concomitant]
     Active Substance: QUININE
     Dosage: QUININE SULFATE, AT NIGHT
  4. SPIKEVAX [Concomitant]
     Active Substance: CX-046684
     Dosage: SPIKEVAX XBB.1.5 COVID-19 MRNA VACCINE, MULTIDOSE VIALS (MODERNA, INC) 0.5 ML INTRAMUSCULAR 0.5 ML
     Route: 030
  5. METFORMIN [Concomitant]
     Active Substance: METFORMIN HYDROCHLORIDE
     Dosage: HELD ACUTE ILLNESS
  6. BISOPROLOL [Concomitant]
     Active Substance: BISOPROLOL\BISOPROLOL FUMARATE
     Dosage: IN THE MORNING
  7. DICLOFENAC DIETHYLAMINE [Concomitant]
     Active Substance: DICLOFENAC DIETHYLAMINE
     Dosage: APPLY THREE OR FOUR TIMES A DAY 100 GRAM- NOT USING, NOT WORKING
  8. TRAMADOL [Concomitant]
     Active Substance: TRAMADOL\TRAMADOL HYDROCHLORIDE
     Dosage: TRAMADOL 50 MG CAPSULES TWO TO BE TAKEN INITIALLY THEN ONE OR TWO TO BE TAKEN EVERY FOUR TO SIX H...
  9. GABAPENTIN [Concomitant]
     Active Substance: GABAPENTIN
     Dosage: TIME INTERVAL: 0.33333333 DAYS
  10. GABAPENTIN [Concomitant]
     Active Substance: GABAPENTIN
     Dosage: GABAPENTIN 100 MG CAPSULES TWO CAPSULES THREE TIME A DAY- IN ADDITION TO THE 600 MG CAPSULE (TOTA...
  11. PRAVASTATIN [Concomitant]
     Active Substance: PRAVASTATIN
     Dosage: AT NIGHT
  12. ALLOPURINOL [Concomitant]
     Active Substance: ALLOPURINOL
  13. IRBESARTAN [Concomitant]
     Active Substance: IRBESARTAN
  14. BETAMETHASONE [Concomitant]
     Active Substance: BETAMETHASONE
     Dosage: APPLY THINLY TWICE A DAY 100 GRAM- NOT USING
  15. ACETAMINOPHEN [Concomitant]
     Active Substance: ACETAMINOPHEN
     Dosage: TWO TO BE TAKEN EVERY 4-6 HOURS UP TO FOUR TIMES A DAY PRN 100 TABLET- STILL TAKING PRN
  16. INSULIN ASPART [Concomitant]
     Active Substance: INSULIN ASPART
     Dosage: NOVOMIX 30 FLEXPEN 100 UNITS / ML SUSPENSION FOR INJECTION 3 ML PRE-FILLED PENS AS DIRECTED 12 UN...

REACTIONS (1)
  - Psychotic disorder [Unknown]
